FAERS Safety Report 9095584 (Version 1)
Quarter: 2013Q1

REPORT INFORMATION
  Report Type: Spontaneous
  Country: US (occurrence: US)
  Receive Date: 20130219
  Receipt Date: 20130219
  Transmission Date: 20140127
  Serious: No
  Sender: FDA-Public Use
  Company Number: US-009507513-1302USA005517

PATIENT
  Sex: Female

DRUGS (2)
  1. REBETOL [Suspect]
     Indication: HEPATITIS C
     Dosage: UNK
     Route: 048
     Dates: start: 20031101
  2. PEGASYS [Suspect]
     Indication: HEPATITIS C
     Dosage: UNK
     Dates: start: 20031101

REACTIONS (7)
  - Influenza like illness [Unknown]
  - Alopecia [Unknown]
  - Insomnia [Unknown]
  - Rash [Unknown]
  - Anaemia [Unknown]
  - Haemoglobin decreased [Unknown]
  - Depression [Unknown]
